FAERS Safety Report 4842887-4 (Version None)
Quarter: 2005Q4

REPORT INFORMATION
  Report Type: 
  Country: None (occurrence: None)
  Receive Date: 20051201
  Receipt Date: 20051114
  Transmission Date: 20060501
  Serious: Yes (Life-Threatening, Hospitalization)
  Sender: FDA-Public Use
  Company Number: PHBS2005JP16747

PATIENT
  Age: 61 Year
  Sex: Male

DRUGS (2)
  1. METOPROLOL [Suspect]
     Indication: HYPERTROPHIC CARDIOMYOPATHY
  2. CIPRALAN [Concomitant]
     Indication: HYPERTROPHIC CARDIOMYOPATHY
     Dosage: 300 MG/DAY
     Route: 048

REACTIONS (2)
  - CARDIO-RESPIRATORY ARREST [None]
  - VENTRICULAR FIBRILLATION [None]
